FAERS Safety Report 8835653 (Version 3)
Quarter: 2012Q4

REPORT INFORMATION
  Report Type: Report from Study
  Country: US (occurrence: US)
  Receive Date: 20121011
  Receipt Date: 20121108
  Transmission Date: 20130627
  Serious: Yes (Hospitalization)
  Sender: FDA-Public Use
  Company Number: US-ABBOTT-12P-163-0990635-00

PATIENT
  Sex: Female

DRUGS (7)
  1. HUMIRA [Suspect]
     Indication: RHEUMATOID ARTHRITIS
     Dates: start: 20120926
  2. HUMIRA [Suspect]
     Indication: PSORIATIC ARTHROPATHY
  3. TOPROL [Concomitant]
     Indication: CARDIOMYOPATHY
     Dosage: Daily
  4. LISINOPRIL [Concomitant]
     Indication: CARDIOMYOPATHY
     Dosage: Daily
  5. UNKNOWN ANTIDEPRESSANT [Concomitant]
     Indication: DEPRESSION
     Dosage: Daily
  6. FOLIC ACID [Concomitant]
     Indication: PRODUCT USED FOR UNKNOWN INDICATION
     Dosage: Daily
  7. MELOXICAM [Concomitant]
     Indication: RHEUMATOID ARTHRITIS
     Dosage: Daily

REACTIONS (4)
  - Cardiomyopathy [Unknown]
  - Loss of consciousness [Recovered/Resolved]
  - Heart rate increased [Recovered/Resolved]
  - Urinary tract infection [Recovered/Resolved]
